FAERS Safety Report 24321347 (Version 1)
Quarter: 2024Q3

REPORT INFORMATION
  Report Type: Spontaneous
  Country: US (occurrence: US)
  Receive Date: 20240916
  Receipt Date: 20240916
  Transmission Date: 20241017
  Serious: Yes (Other)
  Sender: NOVO NORDISK
  Company Number: US-NOVOPROD-1280216

PATIENT
  Sex: Female

DRUGS (1)
  1. OZEMPIC [Suspect]
     Active Substance: SEMAGLUTIDE
     Indication: Type 2 diabetes mellitus
     Dosage: UNK
     Route: 058

REACTIONS (6)
  - Neoplasm malignant [Unknown]
  - Hypertension [Unknown]
  - Drug hypersensitivity [Unknown]
  - Injection site pain [Unknown]
  - Blood glucose increased [Unknown]
  - Wrong technique in product usage process [Unknown]
